FAERS Safety Report 7749679-7 (Version None)
Quarter: 2011Q3

REPORT INFORMATION
  Report Type: 
  Country: None (occurrence: None)
  Receive Date: 20110914
  Receipt Date: 20110908
  Transmission Date: 20111222
  Serious: No
  Sender: FDA-Public Use
  Company Number: US-ROCHE-758096

PATIENT
  Sex: Male

DRUGS (3)
  1. TAMIFLU [Suspect]
     Dosage: STRENGTH: 12 MG/ML
     Route: 048
     Dates: start: 20110202
  2. AMOXICILLIN [Concomitant]
  3. ALBUTEROL [Concomitant]

REACTIONS (5)
  - RASH [None]
  - INCORRECT STORAGE OF DRUG [None]
  - PRODUCT QUALITY ISSUE [None]
  - PRODUCT TASTE ABNORMAL [None]
  - VOMITING [None]
